FAERS Safety Report 4616529-7 (Version None)
Quarter: 2005Q2

REPORT INFORMATION
  Report Type: 
  Country: None (occurrence: None)
  Receive Date: 20050311
  Receipt Date: 20050202
  Transmission Date: 20051028
  Serious: No
  Sender: FDA-Public Use
  Company Number: 2005-00177

PATIENT
  Age: 64 Year
  Sex: Female
  Weight: 67.6 kg

DRUGS (6)
  1. VELCADE [Suspect]
     Indication: MULTIPLE MYELOMA
     Dosage: 1.30 MG/M2, 2/WEEK, INTRAVENOUS
     Route: 042
     Dates: start: 20040802, end: 20050101
  2. POTASSIUM CHLORIDE [Concomitant]
  3. HYDROCHLOROTHIAZIDE [Concomitant]
  4. OXYCONTIN [Concomitant]
  5. PAXIL [Concomitant]
  6. MULTIVITAMIN [Concomitant]

REACTIONS (1)
  - EJECTION FRACTION DECREASED [None]
